FAERS Safety Report 10234118 (Version 3)
Quarter: 2014Q4

REPORT INFORMATION
  Report Type: Spontaneous
  Country: US (occurrence: US)
  Receive Date: 20140612
  Receipt Date: 20141003
  Transmission Date: 20150528
  Serious: Yes (Other)
  Sender: FDA-Public Use
  Company Number: US-GLAXOSMITHKLINE-A1076028A

PATIENT
  Age: 54 Year
  Sex: Female

DRUGS (2)
  1. ADVAIR HFA [Suspect]
     Active Substance: FLUTICASONE PROPIONATE\SALMETEROL XINAFOATE
     Indication: UPPER RESPIRATORY TRACT INFECTION
     Dosage: 1PUFF TWICE PER DAY
     Route: 055
     Dates: start: 20140603
  2. LEVOTHYROXINE [Concomitant]
     Active Substance: LEVOTHYROXINE

REACTIONS (7)
  - Medication residue present [Recovering/Resolving]
  - Oropharyngeal pain [Not Recovered/Not Resolved]
  - Incorrect dose administered [Unknown]
  - Euphoric mood [Not Recovered/Not Resolved]
  - Choking [Recovering/Resolving]
  - Throat irritation [Not Recovered/Not Resolved]
  - Product quality issue [Unknown]

NARRATIVE: CASE EVENT DATE: 20140604
